FAERS Safety Report 13639835 (Version 1)
Quarter: 2017Q2

REPORT INFORMATION
  Report Type: Spontaneous
  Country: US (occurrence: US)
  Receive Date: 20170609
  Receipt Date: 20170609
  Transmission Date: 20170830
  Serious: No
  Sender: FDA-Public Use
  Company Number: US-ROCHE-722167

PATIENT
  Sex: Female
  Weight: 50.9 kg

DRUGS (3)
  1. EMSAM [Concomitant]
     Active Substance: SELEGILINE
     Route: 065
  2. KLONOPIN [Suspect]
     Active Substance: CLONAZEPAM
     Indication: ANXIETY
     Dosage: DATES OF USE: FEW WEEKS, INDICATION: BIPOLAR/ ANXIETY
     Route: 048
  3. ABILIFY [Concomitant]
     Active Substance: ARIPIPRAZOLE
     Route: 065

REACTIONS (1)
  - Menstruation irregular [Unknown]
